FAERS Safety Report 8976399 (Version 1)
Quarter: 2012Q4

REPORT INFORMATION
  Report Type: 
  Country: DK (occurrence: DE)
  Receive Date: 20121220
  Receipt Date: 20121220
  Transmission Date: 20130627
  Serious: Yes (Other)
  Sender: FDA-Public Use
  Company Number: DE-FRI-1000041156

PATIENT
  Sex: Female

DRUGS (2)
  1. ESCITALOPRAM [Suspect]
  2. CANDESARTAN [Interacting]

REACTIONS (6)
  - Muscle spasms [Unknown]
  - Tremor [Unknown]
  - Dizziness [Unknown]
  - Nausea [Unknown]
  - Vomiting [Unknown]
  - Drug interaction [Unknown]
